FAERS Safety Report 22240834 (Version 2)
Quarter: 2023Q2

REPORT INFORMATION
  Report Type: Spontaneous
  Country: DE (occurrence: DE)
  Receive Date: 20230421
  Receipt Date: 20230530
  Transmission Date: 20230722
  Serious: Yes (Death, Other)
  Sender: FDA-Public Use
  Company Number: DE-DSJP-DSE-2023-111137

PATIENT
  Age: 53 Year
  Sex: Female
  Weight: 70 kg

DRUGS (2)
  1. ENHERTU [Suspect]
     Active Substance: FAM-TRASTUZUMAB DERUXTECAN-NXKI
     Indication: Breast cancer metastatic
     Dosage: 5.39 MG/KG, ONCE EVERY 3 WK (TOTAL 13 CYCLES)
     Route: 042
     Dates: start: 20220511, end: 20230125
  2. FLUOXETINE HYDROCHLORIDE [Concomitant]
     Active Substance: FLUOXETINE HYDROCHLORIDE
     Indication: Depression
     Dosage: 10 MG
     Route: 065
     Dates: start: 2014, end: 2023

REACTIONS (20)
  - Interstitial lung disease [Fatal]
  - Diaphragmatic hernia [Unknown]
  - Atelectasis [Unknown]
  - Pulmonary fibrosis [Unknown]
  - Disease progression [Unknown]
  - Barotrauma [Unknown]
  - Thoracic operation [Unknown]
  - Splenomegaly [Unknown]
  - Pneumomediastinum [Unknown]
  - Delirium [Unknown]
  - Pneumonia [Unknown]
  - Pleurectomy [Unknown]
  - Pulmonary mass [Unknown]
  - Hepatic steatosis [Unknown]
  - Osteolysis [Unknown]
  - Renal cyst [Unknown]
  - Uterine leiomyoma [Unknown]
  - Hypercapnia [Unknown]
  - Facial paralysis [Unknown]
  - Paresis [Unknown]

NARRATIVE: CASE EVENT DATE: 20220820
